FAERS Safety Report 10170858 (Version 2)
Quarter: 2014Q2

REPORT INFORMATION
  Report Type: Spontaneous
  Country: US (occurrence: US)
  Receive Date: 20140514
  Receipt Date: 20140525
  Transmission Date: 20141212
  Serious: Yes (Death, Other)
  Sender: FDA-Public Use
  Company Number: US-009507513-1405USA004071

PATIENT
  Age: 58 Year
  Sex: Male

DRUGS (1)
  1. TEMODAR [Suspect]
     Indication: MALIGNANT MELANOMA
     Dosage: UNK, CYCLICAL
     Route: 048
     Dates: start: 20131223, end: 20140414

REACTIONS (2)
  - Malignant melanoma [Fatal]
  - Positron emission tomogram abnormal [Unknown]
